FAERS Safety Report 8358212-0 (Version None)
Quarter: 2012Q2

REPORT INFORMATION
  Report Type: 
  Country: None (occurrence: None)
  Receive Date: 20120514
  Receipt Date: 20120508
  Transmission Date: 20120825
  Serious: Yes (Death)
  Sender: FDA-Public Use
  Company Number: US-GLAXOSMITHKLINE-A0977371A

PATIENT
  Age: 61 Year
  Sex: Male

DRUGS (7)
  1. HYDROMORPHONE HCL [Concomitant]
  2. LEVOTHYROXINE SODIUM [Concomitant]
  3. FUROSEMIDE [Concomitant]
  4. VOTRIENT [Suspect]
     Indication: RENAL CANCER
     Dosage: 200MG TWICE PER DAY
     Route: 048
     Dates: start: 20110428
  5. POTASSIUM CHLORIDE [Concomitant]
  6. METOPROLOL TARTRATE [Concomitant]
  7. PLAVIX [Concomitant]

REACTIONS (1)
  - DEATH [None]
